FAERS Safety Report 8467459-4 (Version None)
Quarter: 2012Q2

REPORT INFORMATION
  Report Type: 
  Country: None (occurrence: None)
  Receive Date: 20120626
  Receipt Date: 20120504
  Transmission Date: 20120825
  Serious: Yes (Other)
  Sender: FDA-Public Use
  Company Number: US-ASTRAZENECA-2012SE26040

PATIENT
  Age: 65 Year
  Sex: Male

DRUGS (8)
  1. CALCITRIOL [Concomitant]
     Route: 048
  2. SYNTHROID [Concomitant]
     Route: 048
  3. CALCIUM + D [Concomitant]
     Dosage: 500-125 MG
     Route: 048
  4. CAPRELSA [Suspect]
     Route: 048
  5. POTASSIUM CHLORIDE CR [Concomitant]
     Dosage: 10 MEQ
     Route: 048
  6. CAPRELSA [Suspect]
     Indication: THYROID CANCER
     Route: 048
     Dates: start: 20120316
  7. CAPRELSA [Suspect]
     Route: 048
  8. CAPRELSA [Suspect]
     Route: 048

REACTIONS (5)
  - BLOOD POTASSIUM DECREASED [None]
  - ELECTROCARDIOGRAM QT PROLONGED [None]
  - HOT FLUSH [None]
  - HYPOAESTHESIA [None]
  - HYPERTENSION [None]
